FAERS Safety Report 16099459 (Version 1)
Quarter: 2019Q1

REPORT INFORMATION
  Report Type: Report from Study
  Country: US (occurrence: US)
  Receive Date: 20190321
  Receipt Date: 20190321
  Transmission Date: 20190418
  Serious: Yes (Hospitalization)
  Sender: FDA-Public Use
  Company Number: US-ROCHE-2285947

PATIENT
  Age: 59 Year
  Sex: Female
  Weight: 67.1 kg

DRUGS (2)
  1. XL184 [Suspect]
     Active Substance: CABOZANTINIB
     Indication: COLORECTAL CANCER
     Dosage: MOST RECENT DOSE OF CABOZANTINIB PRIOR TO AE ONSET: 11/MAR/2019.
     Route: 065
     Dates: start: 20190227
  2. ATEZOLIZUMAB. [Suspect]
     Active Substance: ATEZOLIZUMAB
     Indication: COLORECTAL CANCER
     Route: 042
     Dates: start: 20190227

REACTIONS (1)
  - Acute kidney injury [Not Recovered/Not Resolved]

NARRATIVE: CASE EVENT DATE: 20190312
